FAERS Safety Report 19492653 (Version 1)
Quarter: 2021Q3

REPORT INFORMATION
  Report Type: Spontaneous
  Country: IT (occurrence: IT)
  Receive Date: 20210705
  Receipt Date: 20210705
  Transmission Date: 20211014
  Serious: Yes (Other)
  Sender: FDA-Public Use
  Company Number: IT-ACCORD-230554

PATIENT
  Age: 33 Year
  Sex: Female

DRUGS (5)
  1. TARGIN [Concomitant]
     Active Substance: NALOXONE HYDROCHLORIDE\OXYCODONE HYDROCHLORIDE
  2. PACLITAXEL ACCORD [Suspect]
     Active Substance: PACLITAXEL
     Indication: CERVIX CARCINOMA STAGE III
     Route: 042
     Dates: start: 20210507, end: 20210507
  3. DELTACORTENE [Concomitant]
     Active Substance: PREDNISONE
     Indication: ANAPHYLAXIS PROPHYLAXIS
     Route: 048
     Dates: start: 20210506, end: 20210506
  4. LANSOPRAZOLE. [Concomitant]
     Active Substance: LANSOPRAZOLE
     Route: 048
  5. ZIRTEC [Concomitant]
     Active Substance: CETIRIZINE HYDROCHLORIDE
     Indication: ANAPHYLAXIS PROPHYLAXIS
     Route: 048
     Dates: start: 20210506, end: 20210506

REACTIONS (10)
  - Dyspnoea [Recovered/Resolved]
  - Lip oedema [Recovered/Resolved]
  - Bradycardia [Recovered/Resolved]
  - Hypotension [Recovered/Resolved]
  - Off label use [Unknown]
  - Erythema [Recovered/Resolved]
  - Anaphylactic shock [Recovered/Resolved]
  - Cyanosis [Recovered/Resolved]
  - Chest discomfort [Recovered/Resolved]
  - Oxygen saturation decreased [Recovered/Resolved]

NARRATIVE: CASE EVENT DATE: 20210507
